FAERS Safety Report 5992852-9 (Version None)
Quarter: 2008Q4

REPORT INFORMATION
  Report Type: 
  Country: None (occurrence: None)
  Receive Date: 20081209
  Receipt Date: 20080723
  Transmission Date: 20090506
  Serious: Yes (Hospitalization)
  Sender: FDA-Public Use
  Company Number: 1-16436568

PATIENT
  Sex: Female

DRUGS (2)
  1. PROPAFENONE HCL [Suspect]
     Dosage: 150 MG, THREE TIMES PER DAY, ORAL
     Route: 048
     Dates: start: 20080124, end: 20080124
  2. LISINOPRIL AND HYDROCHLOROTHIAZIDE [Concomitant]

REACTIONS (3)
  - DIZZINESS [None]
  - DYSPEPSIA [None]
  - HEART RATE INCREASED [None]
